FAERS Safety Report 4895092-X (Version None)
Quarter: 2006Q1

REPORT INFORMATION
  Report Type: 
  Country: None (occurrence: None)
  Receive Date: 20060124
  Receipt Date: 20060103
  Transmission Date: 20060701
  Serious: Yes (Hospitalization, Other)
  Sender: FDA-Public Use
  Company Number: DEU-2005-0001873

PATIENT
  Age: 37 Year
  Sex: Female
  Weight: 69.4 kg

DRUGS (4)
  1. MORPHINE SULFATE INJ [Suspect]
     Indication: PAIN
     Dosage: 0.04 MG/ML, SEE TEXT, EPIDURAL
     Route: 008
  2. BUPIVACAINE [Suspect]
     Indication: PAIN
     Dosage: 0.8, SEE TEXT, EPIDURAL
     Route: 008
  3. LIDOCAINE [Suspect]
     Indication: PAIN
     Dosage: SEE TEXT, EPIDURAL
     Route: 008
  4. EPINEPHRINE [Suspect]
     Indication: PAIN
     Dosage: SEE TEXT
     Route: 008

REACTIONS (8)
  - ABSCESS [None]
  - ANAESTHETIC COMPLICATION [None]
  - BACK PAIN [None]
  - CATHETER SITE INFECTION [None]
  - DRUG EXPOSURE DURING PREGNANCY [None]
  - HAEMORRHAGE [None]
  - OSTEOMYELITIS [None]
  - STAPHYLOCOCCAL INFECTION [None]
